FAERS Safety Report 8784192 (Version 2)
Quarter: 2012Q4

REPORT INFORMATION
  Report Type: Spontaneous
  Country: US (occurrence: None)
  Receive Date: 20120830
  Receipt Date: 20120906
  Transmission Date: 20130627
  Serious: Yes (Hospitalization)
  Sender: FDA-Public Use
  Company Number: JPI-P-024247

PATIENT
  Age: 28 Year
  Sex: Female
  Weight: 86.18 kg

DRUGS (5)
  1. XYREM [Suspect]
     Indication: CATAPLEXY
     Dosage: 2 in one day
     Route: 048
     Dates: start: 20120613
  2. XYREM [Suspect]
     Indication: CATAPLEXY
     Dosage: 9 gm (4.5 gm, 2 in 1 D), Oral
     Route: 048
     Dates: end: 20120810
  3. XYREM [Suspect]
     Indication: CATAPLEXY
  4. METHYLPHENIDATE HYDROCHLORIDE [Suspect]
     Indication: ADHD
     Route: 048
     Dates: end: 20120810
  5. VILAZODONE [Suspect]
     Indication: DEPRESSION
     Route: 048
     Dates: end: 20120810

REACTIONS (8)
  - Headache [None]
  - Bradyphrenia [None]
  - Vomiting [None]
  - Hyperhidrosis [None]
  - Dizziness [None]
  - Hypoaesthesia [None]
  - Hypertension [None]
  - Pyrexia [None]
